FAERS Safety Report 15387378 (Version 1)
Quarter: 2018Q3

REPORT INFORMATION
  Report Type: Spontaneous
  Country: RU (occurrence: RU)
  Receive Date: 20180914
  Receipt Date: 20180914
  Transmission Date: 20181010
  Serious: Yes (Hospitalization, Other)
  Sender: FDA-Public Use
  Company Number: RU-ALEXION-A201811609

PATIENT
  Age: 10 Month
  Sex: Male

DRUGS (3)
  1. SOLIRIS [Suspect]
     Active Substance: ECULIZUMAB
     Dosage: UNK, QMONTH
     Dates: start: 201602
  2. IRON [Concomitant]
     Active Substance: IRON
     Indication: PRODUCT USED FOR UNKNOWN INDICATION
     Dosage: UNK
     Route: 065
  3. SOLIRIS [Suspect]
     Active Substance: ECULIZUMAB
     Indication: ATYPICAL HAEMOLYTIC URAEMIC SYNDROME
     Dosage: 300 MG, Q2W
     Route: 041
     Dates: start: 20150206

REACTIONS (13)
  - Serum ferritin increased [Recovered/Resolved]
  - Alanine aminotransferase increased [Recovered/Resolved]
  - Reticulocytosis [Recovered/Resolved]
  - Blood alkaline phosphatase increased [Recovered/Resolved]
  - Haemoglobin decreased [Recovered/Resolved]
  - Hepatomegaly [Recovered/Resolved]
  - Gamma-glutamyltransferase increased [Recovered/Resolved]
  - Aspartate aminotransferase increased [Recovered/Resolved]
  - Gastrooesophageal reflux disease [Recovered/Resolved]
  - Hepatitis toxic [Recovered/Resolved]
  - Pneumonia [Recovered/Resolved]
  - Inappropriate schedule of drug administration [Recovered/Resolved]
  - Oxygen saturation decreased [Recovered/Resolved]

NARRATIVE: CASE EVENT DATE: 201504
